FAERS Safety Report 6743735-8 (Version None)
Quarter: 2010Q2

REPORT INFORMATION
  Report Type: 
  Country: None (occurrence: None)
  Receive Date: 20100526
  Receipt Date: 20100526
  Transmission Date: 20101027
  Serious: Yes (Other)
  Sender: FDA-Public Use
  Company Number: None

PATIENT
  Age: 74 Year
  Sex: Female
  Weight: 70.3075 kg

DRUGS (1)
  1. ALENDRONATE SODIUM [Suspect]
     Indication: BONE DISORDER
     Dosage: 1TAB WEEKLY 047
     Dates: start: 20100208

REACTIONS (4)
  - ABASIA [None]
  - DRUG INEFFECTIVE [None]
  - PAIN [None]
  - PAIN IN EXTREMITY [None]
